FAERS Safety Report 6994616-6 (Version None)
Quarter: 2010Q3

REPORT INFORMATION
  Report Type: 
  Country: None (occurrence: None)
  Receive Date: 20100916
  Receipt Date: 20100916
  Transmission Date: 20110219
  Serious: Yes (Life-Threatening)
  Sender: FDA-Public Use
  Company Number: None

PATIENT
  Sex: Female
  Weight: 74.1 kg

DRUGS (3)
  1. NATEGLINIDE [Suspect]
     Indication: DIABETES MELLITUS
     Dosage: 60MG 3 TIMES DAILY MEDCO
     Dates: start: 20100909, end: 20100911
  2. JANUVIA [Concomitant]
  3. LISINOPRIL [Concomitant]

REACTIONS (4)
  - DIABETES MELLITUS INADEQUATE CONTROL [None]
  - DYSPNOEA [None]
  - HEART RATE INCREASED [None]
  - PRURITUS [None]
